FAERS Safety Report 7955229-2 (Version None)
Quarter: 2011Q4

REPORT INFORMATION
  Report Type: 
  Country: None (occurrence: None)
  Receive Date: 20111202
  Receipt Date: 20111122
  Transmission Date: 20120403
  Serious: Yes (Hospitalization, Other)
  Sender: FDA-Public Use
  Company Number: ES-GENZYME-THYM-1002930

PATIENT
  Age: 16 Year
  Sex: Male

DRUGS (5)
  1. ITRACONAZOLE [Concomitant]
     Indication: PROPHYLAXIS
     Dosage: 200 MG, QD
     Route: 042
     Dates: start: 20110519
  2. CYCLOSPORINE [Suspect]
     Indication: APLASTIC ANAEMIA
     Dosage: 125 MG, Q12HR
     Dates: start: 20110526
  3. THYMOGLOBULIN [Suspect]
     Indication: APLASTIC ANAEMIA
     Dosage: 345 MG, QD
     Route: 042
     Dates: start: 20110526, end: 20110529
  4. METHYLPREDNISOLONE [Concomitant]
     Indication: APLASTIC ANAEMIA
     Dosage: 60 MG, QD
     Dates: start: 20110526, end: 20110531
  5. ACYCLOVIR [Concomitant]
     Indication: PROPHYLAXIS
     Dosage: 1.6 G, BID
     Dates: start: 20110513

REACTIONS (2)
  - CYTOLYTIC HEPATITIS [None]
  - HYPERBILIRUBINAEMIA [None]
